FAERS Safety Report 9169465 (Version 1)
Quarter: 2013Q1

REPORT INFORMATION
  Report Type: Report from Study
  Country: US (occurrence: US)
  Receive Date: 20130318
  Receipt Date: 20130318
  Transmission Date: 20140127
  Serious: Yes (Hospitalization)
  Sender: FDA-Public Use
  Company Number: US-ABBOTT-13P-163-1061532-00

PATIENT
  Age: 56 Year
  Sex: Female
  Weight: 81 kg

DRUGS (3)
  1. HUMIRA [Suspect]
     Indication: PSORIASIS
     Route: 058
     Dates: start: 201206
  2. HUMIRA [Suspect]
     Route: 058
     Dates: start: 20120815
  3. METHOTREXATE [Concomitant]
     Indication: PSORIASIS
     Dates: start: 20110811

REACTIONS (4)
  - Transient ischaemic attack [Recovered/Resolved]
  - Aphasia [Recovered/Resolved]
  - Abasia [Recovered/Resolved]
  - Speech disorder [Recovered/Resolved]
